FAERS Safety Report 15548211 (Version 3)
Quarter: 2019Q4

REPORT INFORMATION
  Report Type: Report from Study
  Country: US (occurrence: US)
  Receive Date: 20181024
  Receipt Date: 20191015
  Transmission Date: 20200122
  Serious: Yes (Hospitalization)
  Sender: FDA-Public Use
  Company Number: PHEH2018US044591

PATIENT
  Sex: Male

DRUGS (1)
  1. ENTRESTO [Suspect]
     Active Substance: SACUBITRIL\VALSARTAN
     Indication: FATIGUE
     Dosage: UNK
     Route: 048

REACTIONS (4)
  - Enzyme level increased [Unknown]
  - Malaise [Unknown]
  - Product use in unapproved indication [Unknown]
  - Cardiac stress test abnormal [Unknown]
